FAERS Safety Report 7377428-3 (Version None)
Quarter: 2011Q1

REPORT INFORMATION
  Report Type: 
  Country: None (occurrence: None)
  Receive Date: 20110315
  Receipt Date: 20110303
  Transmission Date: 20110831
  Serious: Yes (Other)
  Sender: FDA-Public Use
  Company Number: 026053

PATIENT
  Sex: Female

DRUGS (1)
  1. CIMZIA [Suspect]
     Indication: CROHN'S DISEASE
     Dosage: (SUBCUTANEOUS)
     Route: 058
     Dates: start: 20091201

REACTIONS (11)
  - HYPOAESTHESIA [None]
  - PARAESTHESIA [None]
  - OPEN WOUND [None]
  - SOMNOLENCE [None]
  - POSTOPERATIVE WOUND COMPLICATION [None]
  - SCAR [None]
  - IMPAIRED HEALING [None]
  - SINUS DISORDER [None]
  - PAIN [None]
  - INTESTINAL RESECTION [None]
  - OSTEOPOROSIS [None]
